FAERS Safety Report 19942406 (Version 1)
Quarter: 2021Q4

REPORT INFORMATION
  Report Type: Spontaneous
  Country: CA (occurrence: CA)
  Receive Date: 20211011
  Receipt Date: 20211011
  Transmission Date: 20220304
  Serious: Yes (Death, Other)
  Sender: FDA-Public Use
  Company Number: CA-PFIZER INC-2021106131

PATIENT
  Age: 69 Year
  Sex: Male

DRUGS (23)
  1. ZIRABEV [Suspect]
     Active Substance: BEVACIZUMAB-BVZR
     Indication: Glioma
     Dosage: 1500 MG, EVERY 3 WEEKS
     Route: 042
     Dates: start: 20210216
  2. ZIRABEV [Suspect]
     Active Substance: BEVACIZUMAB-BVZR
     Dosage: 1500 MG, EVERY 3 WEEKS
     Route: 042
     Dates: start: 20210216
  3. ZIRABEV [Suspect]
     Active Substance: BEVACIZUMAB-BVZR
     Dosage: 1500 MG, EVERY 3 WEEKS
     Route: 042
     Dates: start: 20210308
  4. ZIRABEV [Suspect]
     Active Substance: BEVACIZUMAB-BVZR
     Dosage: 1500 MG, EVERY 3 WEEKS
     Route: 042
     Dates: start: 20210308
  5. ZIRABEV [Suspect]
     Active Substance: BEVACIZUMAB-BVZR
     Dosage: 1500 MG, EVERY 3 WEEKS
     Route: 042
     Dates: start: 20210329
  6. ZIRABEV [Suspect]
     Active Substance: BEVACIZUMAB-BVZR
     Dosage: 1500 MG, EVERY 3 WEEKS
     Route: 042
     Dates: start: 20210329
  7. ZIRABEV [Suspect]
     Active Substance: BEVACIZUMAB-BVZR
     Dosage: 1500 MG, EVERY 3 WEEKS
     Route: 042
     Dates: start: 20210419
  8. ZIRABEV [Suspect]
     Active Substance: BEVACIZUMAB-BVZR
     Dosage: 1500 MG, EVERY 3 WEEKS
     Route: 042
     Dates: start: 20210419
  9. ZIRABEV [Suspect]
     Active Substance: BEVACIZUMAB-BVZR
     Dosage: 1500 MG, EVERY 3 WEEKS (LEFT HAND)
     Route: 042
     Dates: start: 20210621
  10. ZIRABEV [Suspect]
     Active Substance: BEVACIZUMAB-BVZR
     Dosage: 1500 MG, EVERY 3 WEEKS (LEFT HAND)
     Route: 042
     Dates: start: 20210621
  11. ZIRABEV [Suspect]
     Active Substance: BEVACIZUMAB-BVZR
     Dosage: 1500 MG, EVERY 3 WEEKS (RIGHT HAND)
     Route: 042
     Dates: start: 20210621
  12. ZIRABEV [Suspect]
     Active Substance: BEVACIZUMAB-BVZR
     Dosage: 1500 MG, EVERY 3 WEEKS (RIGHT HAND)
     Route: 042
     Dates: start: 20210712
  13. ZIRABEV [Suspect]
     Active Substance: BEVACIZUMAB-BVZR
     Dosage: 1500 MG, EVERY 3 WEEKS (RIGHT HAND)
     Route: 042
     Dates: start: 20210712
  14. ZIRABEV [Suspect]
     Active Substance: BEVACIZUMAB-BVZR
     Dosage: 1500 MG, EVERY 3 WEEKS (RIGHT HAND)
     Route: 042
     Dates: start: 20210803
  15. ZIRABEV [Suspect]
     Active Substance: BEVACIZUMAB-BVZR
     Dosage: 1500 MG, EVERY 3 WEEKS (RIGHT HAND)
     Route: 042
     Dates: start: 20210803
  16. ZIRABEV [Suspect]
     Active Substance: BEVACIZUMAB-BVZR
     Dosage: 1500 MG, EVERY 3 WEEKS (RIGHT HAND)
     Route: 042
     Dates: start: 20210824
  17. ZIRABEV [Suspect]
     Active Substance: BEVACIZUMAB-BVZR
     Dosage: 1500 MG, EVERY 3 WEEKS (RIGHT HAND)
     Route: 042
     Dates: start: 20210824
  18. ZIRABEV [Suspect]
     Active Substance: BEVACIZUMAB-BVZR
     Dosage: 1500 MG, EVERY 3 WEEKS (RIGHT HAND)
     Route: 042
     Dates: start: 20210914, end: 20210914
  19. LOMUSTINE [Concomitant]
     Active Substance: LOMUSTINE
     Dosage: UNK
  20. CAPECITABINE [Concomitant]
     Active Substance: CAPECITABINE
     Dosage: UNK
  21. TUKYSA [Concomitant]
     Active Substance: TUCATINIB
     Dosage: UNK
  22. TRAZIMERA [Concomitant]
     Active Substance: TRASTUZUMAB-QYYP
     Dosage: 6 MG/KG, EVERY 3 WEEKS
     Route: 042
     Dates: start: 20210122
  23. TRAZIMERA [Concomitant]
     Active Substance: TRASTUZUMAB-QYYP
     Dosage: 6 MG/KG, EVERY 3 WEEKS
     Route: 042
     Dates: start: 20210122

REACTIONS (14)
  - Death [Fatal]
  - Blood pressure increased [Unknown]
  - Blood pressure fluctuation [Unknown]
  - Weight decreased [Unknown]
  - Peripheral swelling [Unknown]
  - Blood pressure systolic increased [Unknown]
  - Localised infection [Unknown]
  - Limb injury [Unknown]
  - Dysstasia [Unknown]
  - Dyspnoea [Unknown]
  - Poor venous access [Unknown]
  - General physical health deterioration [Unknown]
  - Off label use [Unknown]
  - Inappropriate schedule of product administration [Unknown]

NARRATIVE: CASE EVENT DATE: 20210101
